FAERS Safety Report 24390248 (Version 1)
Quarter: 2024Q4

REPORT INFORMATION
  Report Type: Other
  Country: US (occurrence: US)
  Receive Date: 20241003
  Receipt Date: 20241003
  Transmission Date: 20250114
  Serious: Yes (Death, Other)
  Sender: ACI HEALTHCARE
  Company Number: US-ACI HealthCare Limited-2162421

PATIENT
  Age: 88 Year
  Sex: Female

DRUGS (1)
  1. DONEPEZIL HYDROCHLORIDE [Suspect]
     Active Substance: DONEPEZIL HYDROCHLORIDE
     Indication: Product used for unknown indication

REACTIONS (4)
  - Arteriosclerosis coronary artery [Fatal]
  - Overdose [Unknown]
  - Toxicity to various agents [Fatal]
  - Haematoma [Fatal]
